FAERS Safety Report 9726569 (Version 1)
Quarter: 2013Q4

REPORT INFORMATION
  Report Type: Spontaneous
  Country: CN (occurrence: CN)
  Receive Date: 20131203
  Receipt Date: 20131203
  Transmission Date: 20140711
  Serious: Yes (Hospitalization)
  Sender: FDA-Public Use
  Company Number: CN-BAYER-2013-146325

PATIENT
  Age: 80 Year
  Sex: Female

DRUGS (1)
  1. ULTRAVIST 370 [Suspect]
     Indication: ARTERIOGRAM CORONARY
     Dosage: UNK UNK, ONCE
     Dates: start: 20131127, end: 20131127

REACTIONS (4)
  - Cyanosis [None]
  - Laryngeal oedema [None]
  - Cardiac arrest [Recovered/Resolved]
  - Apnoea [Recovered/Resolved]
